FAERS Safety Report 9227377 (Version 1)
Quarter: 2013Q2

REPORT INFORMATION
  Report Type: Spontaneous
  Country: US (occurrence: US)
  Receive Date: 20130412
  Receipt Date: 20130412
  Transmission Date: 20140414
  Serious: Yes (Hospitalization, Other)
  Sender: FDA-Public Use
  Company Number: US-PFIZER INC-2013112968

PATIENT
  Age: 63 Year
  Sex: Female
  Weight: 84.35 kg

DRUGS (3)
  1. EFFEXOR [Suspect]
     Indication: DEPRESSION
     Dosage: UNK
     Route: 048
  2. NORTRIPTYLINE [Concomitant]
     Dosage: UNK
  3. VISTARIL [Concomitant]
     Dosage: 10 MG, AS NEEDED

REACTIONS (10)
  - Major depression [Not Recovered/Not Resolved]
  - Acute myocardial infarction [Unknown]
  - Coronary artery disease [Not Recovered/Not Resolved]
  - Chest pain [Recovering/Resolving]
  - Dyspnoea [Recovering/Resolving]
  - Dyspnoea exertional [Recovering/Resolving]
  - Cardiac disorder [Unknown]
  - Hypertension [Not Recovered/Not Resolved]
  - Anxiety [Not Recovered/Not Resolved]
  - Agitation [Not Recovered/Not Resolved]
